FAERS Safety Report 24549968 (Version 2)
Quarter: 2025Q1

REPORT INFORMATION
  Report Type: Report from Study
  Country: CA (occurrence: CA)
  Receive Date: 20241025
  Receipt Date: 20250101
  Transmission Date: 20250409
  Serious: Yes (Other)
  Sender: NOVARTIS
  Company Number: CA-002147023-NVSC2023CA026617

PATIENT
  Sex: Female
  Weight: 80 kg

DRUGS (3)
  1. KESIMPTA [Suspect]
     Active Substance: OFATUMUMAB
     Indication: Relapsing-remitting multiple sclerosis
     Dosage: 20 MG, QMO
     Route: 058
     Dates: start: 20230201
  2. KESIMPTA [Suspect]
     Active Substance: OFATUMUMAB
     Route: 058
  3. GABAPENTIN [Concomitant]
     Active Substance: GABAPENTIN
     Indication: Product used for unknown indication
     Route: 065

REACTIONS (15)
  - Neurogenic bladder [Unknown]
  - Carpal tunnel syndrome [Unknown]
  - Hypoaesthesia [Unknown]
  - Muscle spasms [Not Recovered/Not Resolved]
  - Pain [Unknown]
  - Sensory disturbance [Unknown]
  - Chills [Unknown]
  - Fatigue [Unknown]
  - Headache [Unknown]
  - Paraesthesia [Unknown]
  - Gait disturbance [Unknown]
  - Arthralgia [Unknown]
  - Micturition urgency [Unknown]
  - Insomnia [Unknown]
  - Weight increased [Unknown]
